FAERS Safety Report 6679787-3 (Version None)
Quarter: 2010Q2

REPORT INFORMATION
  Report Type: 
  Country: None (occurrence: None)
  Receive Date: 20100413
  Receipt Date: 20091208
  Transmission Date: 20101027
  Serious: No
  Sender: FDA-Public Use
  Company Number: US-ASTRAZENECA-2009SE30850

PATIENT
  Sex: Female

DRUGS (4)
  1. ATENOLOL [Suspect]
  2. NORVASC [Suspect]
  3. CLONIDINE [Suspect]
  4. MICARDIS [Suspect]

REACTIONS (1)
  - BLOOD PRESSURE INADEQUATELY CONTROLLED [None]
